FAERS Safety Report 4744068-1 (Version None)
Quarter: 2005Q3

REPORT INFORMATION
  Report Type: 
  Country: None (occurrence: None)
  Receive Date: 20050811
  Receipt Date: 20050811
  Transmission Date: 20060218
  Serious: Yes (Hospitalization)
  Sender: FDA-Public Use
  Company Number: None

PATIENT
  Sex: Male

DRUGS (1)
  1. VELCADE [Suspect]
     Indication: DIFFUSE LARGE B-CELL LYMPHOMA
     Dosage: 1.3 MG/ML IVP ON D1 AND D4 OF 21 D CYCLE
     Route: 042

REACTIONS (2)
  - FATIGUE [None]
  - VENTRICULAR DYSFUNCTION [None]
